FAERS Safety Report 14900130 (Version 1)
Quarter: 2018Q2

REPORT INFORMATION
  Report Type: Spontaneous
  Country: FR (occurrence: FR)
  Receive Date: 20180516
  Receipt Date: 20180516
  Transmission Date: 20180711
  Serious: Yes (Other)
  Sender: FDA-Public Use
  Company Number: FR-MERCK KGAA-2047891

PATIENT
  Age: 45 Year
  Sex: Female

DRUGS (2)
  1. NOVOTHYROX [Suspect]
     Active Substance: LEVOTHYROXINE SODIUM
     Indication: PRODUCT USED FOR UNKNOWN INDICATION
  2. NOVOTHYROX [Suspect]
     Active Substance: LEVOTHYROXINE SODIUM

REACTIONS (27)
  - Myalgia [None]
  - Irritability [None]
  - Impaired quality of life [None]
  - Nervousness [None]
  - Headache [None]
  - Suicidal ideation [None]
  - Therapeutic response decreased [None]
  - Mood swings [None]
  - Thyroid pain [None]
  - Depression [None]
  - Fatigue [None]
  - Anxiety [None]
  - Libido decreased [None]
  - Aggression [None]
  - Blood thyroid stimulating hormone decreased [None]
  - Feeling cold [None]
  - Neck pain [None]
  - Negative thoughts [None]
  - Loss of personal independence in daily activities [None]
  - Weight increased [None]
  - Fibromyalgia [None]
  - Palpitations [None]
  - Alopecia [None]
  - Asthenia [None]
  - Fear [None]
  - Tri-iodothyronine decreased [None]
  - Anti-thyroid antibody positive [None]

NARRATIVE: CASE EVENT DATE: 2017
